FAERS Safety Report 15227368 (Version 1)
Quarter: 2018Q3

REPORT INFORMATION
  Report Type: Spontaneous
  Country: PL (occurrence: PL)
  Receive Date: 20180801
  Receipt Date: 20180801
  Transmission Date: 20181010
  Serious: Yes (Other)
  Sender: FDA-Public Use
  Company Number: PHHY2018PL060622

PATIENT
  Age: 32 Year
  Sex: Female

DRUGS (8)
  1. GABAPENTIN. [Suspect]
     Active Substance: GABAPENTIN
     Indication: GENERALISED TONIC-CLONIC SEIZURE
     Dosage: UNK
     Route: 065
  2. TIAGABINE [Suspect]
     Active Substance: TIAGABINE
     Indication: GENERALISED TONIC-CLONIC SEIZURE
     Route: 065
  3. TIAGABINE [Suspect]
     Active Substance: TIAGABINE
     Indication: DEPRESSED LEVEL OF CONSCIOUSNESS
  4. GABAPENTIN. [Suspect]
     Active Substance: GABAPENTIN
     Indication: DEPRESSED LEVEL OF CONSCIOUSNESS
  5. CARBAMAZEPINE. [Suspect]
     Active Substance: CARBAMAZEPINE
     Indication: GENERALISED TONIC-CLONIC SEIZURE
     Route: 065
  6. CARBAMAZEPINE. [Suspect]
     Active Substance: CARBAMAZEPINE
     Indication: ALTERED STATE OF CONSCIOUSNESS
  7. PHENYTOIN. [Suspect]
     Active Substance: PHENYTOIN
     Indication: DEPRESSED LEVEL OF CONSCIOUSNESS
  8. PHENYTOIN. [Suspect]
     Active Substance: PHENYTOIN
     Indication: GENERALISED TONIC-CLONIC SEIZURE
     Dosage: UNK
     Route: 065

REACTIONS (2)
  - Medication error [Unknown]
  - Drug ineffective [Unknown]
